FAERS Safety Report 23601016 (Version 1)
Quarter: 2024Q1

REPORT INFORMATION
  Report Type: Spontaneous
  Country: DE (occurrence: DE)
  Receive Date: 20240306
  Receipt Date: 20240306
  Transmission Date: 20240410
  Serious: Yes (Hospitalization)
  Sender: FDA-Public Use
  Company Number: DE-009507513-2401DEU017068

PATIENT
  Age: 61 Year
  Sex: Male
  Weight: 84 kg

DRUGS (5)
  1. CARBOPLATIN [Suspect]
     Active Substance: CARBOPLATIN
     Dosage: 480 MILLIGRAM
     Route: 065
     Dates: start: 20240111, end: 20240111
  2. CARBOPLATIN [Suspect]
     Active Substance: CARBOPLATIN
     Indication: Non-small cell lung cancer
     Dosage: 590 MILLIGRAM
     Route: 065
     Dates: start: 20231024
  3. PEMETREXED [Suspect]
     Active Substance: PEMETREXED
     Dosage: 1030 MILLIGRAM
     Route: 065
     Dates: start: 20231025
  4. PEMETREXED [Suspect]
     Active Substance: PEMETREXED
     Indication: Non-small cell lung cancer
     Dosage: 864 MILLIGRAM
     Route: 065
     Dates: start: 20240111, end: 20240111
  5. PEMBROLIZUMAB [Suspect]
     Active Substance: PEMBROLIZUMAB
     Indication: Non-small cell lung cancer
     Dosage: 200 MILLIGRAM
     Route: 065
     Dates: start: 20231024, end: 20240111

REACTIONS (1)
  - Pneumonia [Recovering/Resolving]

NARRATIVE: CASE EVENT DATE: 20240125
